FAERS Safety Report 16753451 (Version 1)
Quarter: 2019Q3

REPORT INFORMATION
  Report Type: Report from Study
  Country: US (occurrence: US)
  Receive Date: 20190829
  Receipt Date: 20190829
  Transmission Date: 20191005
  Serious: Yes (Other)
  Sender: FDA-Public Use
  Company Number: US-SA-2019SA230680

PATIENT
  Age: 35 Year
  Sex: Female

DRUGS (6)
  1. ZANAFLEX [Concomitant]
     Active Substance: TIZANIDINE HYDROCHLORIDE
     Dosage: UNK MG
  2. CYCLOBENZAPRINE. [Concomitant]
     Active Substance: CYCLOBENZAPRINE
     Dosage: 5 MG
  3. FLUTICASONE. [Concomitant]
     Active Substance: FLUTICASONE
     Dosage: 50 UG
     Route: 045
  4. ANTIVERT [Concomitant]
     Active Substance: MECLIZINE HYDROCHLORIDE
     Dosage: UNK
  5. AFRIN [OXYMETAZOLINE] [Concomitant]
     Route: 045
  6. ALEMTUZUMAB [Suspect]
     Active Substance: ALEMTUZUMAB
     Indication: MULTIPLE SCLEROSIS
     Dosage: 12 MG, QD
     Route: 041
     Dates: start: 20181001, end: 20181005

REACTIONS (32)
  - Optic neuritis [Unknown]
  - Synovial cyst [Unknown]
  - Arthralgia [Unknown]
  - Paraesthesia [Unknown]
  - Arthropathy [Unknown]
  - Obesity [Unknown]
  - Gait disturbance [Unknown]
  - Gastrooesophageal reflux disease [Unknown]
  - Skin papilloma [Unknown]
  - Presyncope [Unknown]
  - Carpal tunnel syndrome [Unknown]
  - Peroneal nerve palsy [Unknown]
  - Chronic sinusitis [Unknown]
  - Herpes simplex [Unknown]
  - Postoperative care [Unknown]
  - Fatigue [Recovered/Resolved]
  - Hirsutism [Unknown]
  - Sleep apnoea syndrome [Unknown]
  - Hyperglycaemia [Unknown]
  - Sterilisation [Unknown]
  - Decreased appetite [Unknown]
  - Rhinitis allergic [Unknown]
  - Vitamin D deficiency [Unknown]
  - Hypoaesthesia [Unknown]
  - Anxiety [Unknown]
  - Genital herpes [Unknown]
  - Loss of consciousness [Recovered/Resolved]
  - Polycystic ovaries [Unknown]
  - Hypersomnia [Unknown]
  - Depression [Unknown]
  - Abdominal pain [Unknown]
  - Burning sensation [Recovered/Resolved]

NARRATIVE: CASE EVENT DATE: 201810
